FAERS Safety Report 4604624-8 (Version None)
Quarter: 2005Q1

REPORT INFORMATION
  Report Type: 
  Country: None (occurrence: None)
  Receive Date: 20050224
  Receipt Date: 20041116
  Transmission Date: 20050727
  Serious: No
  Sender: FDA-Public Use
  Company Number: SU-2004-002840

PATIENT
  Age: 53 Year
  Sex: Male
  Weight: 149.687 kg

DRUGS (1)
  1. BENICAR [Suspect]
     Indication: HYPERTENSION
     Dosage: 20 MG QD PO
     Route: 048
     Dates: start: 20040601, end: 20041001

REACTIONS (2)
  - TENDON DISORDER [None]
  - TENDON INJURY [None]
